FAERS Safety Report 20045868 (Version 1)
Quarter: 2021Q4

REPORT INFORMATION
  Report Type: Report from Study
  Country: US (occurrence: US)
  Receive Date: 20211108
  Receipt Date: 20211108
  Transmission Date: 20220303
  Serious: No
  Sender: FDA-Public Use
  Company Number: US-NOVARTISTESTPH-NVSC2021US245133

PATIENT
  Sex: Female

DRUGS (6)
  1. XOLAIR [Suspect]
     Active Substance: OMALIZUMAB
     Indication: Asthma
     Dosage: 350 MG, EVERY 2 WEEKS
     Route: 058
  2. DONEPEZIL [Suspect]
     Active Substance: DONEPEZIL
     Indication: Unevaluable event
     Dosage: 5 MG, (TAKEN AT NIGHT)
     Route: 065
  3. DONEPEZIL [Suspect]
     Active Substance: DONEPEZIL
     Dosage: 10 MG, QD
     Route: 065
  4. GABAPENTIN [Concomitant]
     Active Substance: GABAPENTIN
     Indication: Pain
     Dosage: 400 MG, TID
     Route: 048
  5. METFORMIN [Concomitant]
     Active Substance: METFORMIN HYDROCHLORIDE
     Indication: Diabetes mellitus
     Dosage: 50 MG, BID
     Route: 048
  6. DULOXETINE [Concomitant]
     Active Substance: DULOXETINE
     Indication: Pain
     Dosage: 40 MG, BID
     Route: 065

REACTIONS (6)
  - Amnesia [Not Recovered/Not Resolved]
  - Off label use [Unknown]
  - Back pain [Unknown]
  - Cough [Unknown]
  - Vomiting [Recovered/Resolved]
  - Diarrhoea [Recovered/Resolved]
